FAERS Safety Report 14571845 (Version 1)
Quarter: 2018Q1

REPORT INFORMATION
  Report Type: Spontaneous
  Country: US (occurrence: US)
  Receive Date: 20180223
  Receipt Date: 20180223
  Transmission Date: 20180509
  Serious: Yes (Hospitalization)
  Sender: FDA-Public Use
  Company Number: None

PATIENT
  Age: 60 Year
  Sex: Male
  Weight: 72.12 kg

DRUGS (18)
  1. ACETAMINOPHEN. [Concomitant]
     Active Substance: ACETAMINOPHEN
  2. HYDRALAZINE [Concomitant]
     Active Substance: HYDRALAZINE HYDROCHLORIDE
  3. TRAZODONE [Concomitant]
     Active Substance: TRAZODONE HYDROCHLORIDE
  4. AMLODIPINE [Concomitant]
     Active Substance: AMLODIPINE BESYLATE
  5. ASPIRIN. [Concomitant]
     Active Substance: ASPIRIN
  6. LACTULOSE. [Concomitant]
     Active Substance: LACTULOSE
  7. DOCUSATE SODIUM. [Suspect]
     Active Substance: DOCUSATE SODIUM
  8. ATORVASTATIN [Concomitant]
     Active Substance: ATORVASTATIN
  9. FLUTICASONE. [Concomitant]
     Active Substance: FLUTICASONE
  10. CLARITIN [Concomitant]
     Active Substance: LORATADINE
  11. FERROUS SULFATE. [Concomitant]
     Active Substance: FERROUS SULFATE
  12. MIRTAZAPINE. [Concomitant]
     Active Substance: MIRTAZAPINE
  13. TRAMADOL. [Concomitant]
     Active Substance: TRAMADOL
  14. SOFOSBUVIR-VELPATASIR 400-100MG [Suspect]
     Active Substance: SOFOSBUVIR\VELPATASVIR
     Indication: HEPATITIS C
     Route: 048
     Dates: start: 20170810, end: 20180125
  15. BISACODYL. [Concomitant]
     Active Substance: BISACODYL
  16. CARVEDILOL. [Concomitant]
     Active Substance: CARVEDILOL
  17. PSYLLIUM HUSK. [Concomitant]
     Active Substance: PSYLLIUM HUSK
  18. SENNA [Concomitant]
     Active Substance: SENNA LEAF\SENNOSIDES\SENNOSIDES A AND B

REACTIONS (10)
  - Respiratory failure [None]
  - Hepatic cirrhosis [None]
  - Urinary retention [None]
  - Hypertension [None]
  - End stage renal disease [None]
  - Coronary artery disease [None]
  - Melaena [None]
  - Anaemia [None]
  - Decubitus ulcer [None]
  - Malnutrition [None]

NARRATIVE: CASE EVENT DATE: 20180104
